FAERS Safety Report 8536392-1 (Version None)
Quarter: 2012Q3

REPORT INFORMATION
  Report Type: 
  Country: None (occurrence: None)
  Receive Date: 20120725
  Receipt Date: 20120719
  Transmission Date: 20120928
  Serious: Yes (Other)
  Sender: FDA-Public Use
  Company Number: US-TEVA-349665USA

PATIENT
  Sex: Female

DRUGS (4)
  1. ZANAFLEX [Concomitant]
     Dosage: 200 MILLIGRAM;
     Route: 048
     Dates: start: 20110101
  2. SEROQUEL [Concomitant]
     Route: 048
  3. TRAZODONE HYDROCHLORIDE [Suspect]
     Indication: SLEEP DISORDER
     Route: 048
  4. METHADONE HYDROCHLORIDE [Concomitant]
     Dosage: 40 MILLIGRAM;
     Route: 048

REACTIONS (9)
  - WITHDRAWAL SYNDROME [None]
  - PRESSURE OF SPEECH [None]
  - HYPOTENSION [None]
  - LOSS OF CONSCIOUSNESS [None]
  - DRUG SCREEN FALSE POSITIVE [None]
  - PULSE PRESSURE DECREASED [None]
  - NIGHTMARE [None]
  - DIZZINESS [None]
  - HYPERHIDROSIS [None]
